FAERS Safety Report 19222615 (Version 1)
Quarter: 2021Q2

REPORT INFORMATION
  Report Type: Report from Study
  Country: CA (occurrence: CA)
  Receive Date: 20210506
  Receipt Date: 20210506
  Transmission Date: 20210717
  Serious: Yes (Other)
  Sender: FDA-Public Use
  Company Number: CA-JNJFOC-20210410315

PATIENT
  Age: 63 Year
  Sex: Female

DRUGS (12)
  1. FLONASE [Concomitant]
     Active Substance: FLUTICASONE PROPIONATE
  2. UPTRAVI [Suspect]
     Active Substance: SELEXIPAG
     Indication: PULMONARY ARTERIAL HYPERTENSION
     Route: 048
     Dates: start: 20210318
  3. OXYGEN. [Concomitant]
     Active Substance: OXYGEN
  4. ASCORBIC ACID. [Concomitant]
     Active Substance: ASCORBIC ACID
  5. UPTRAVI [Suspect]
     Active Substance: SELEXIPAG
     Indication: SCLERODERMA
  6. ADCIRCA [Concomitant]
     Active Substance: TADALAFIL
  7. NAPROXEN. [Concomitant]
     Active Substance: NAPROXEN
  8. VOLIBRIS [Concomitant]
     Active Substance: AMBRISENTAN
  9. NEXIUM [Concomitant]
     Active Substance: ESOMEPRAZOLE MAGNESIUM
  10. IRON [Concomitant]
     Active Substance: IRON
  11. ADVIL [Concomitant]
     Active Substance: IBUPROFEN
  12. VITAMIN D [ERGOCALCIFEROL] [Concomitant]
     Active Substance: ERGOCALCIFEROL

REACTIONS (3)
  - Off label use [Unknown]
  - Product use in unapproved indication [Unknown]
  - Lung neoplasm [Not Recovered/Not Resolved]
